FAERS Safety Report 15750077 (Version 2)
Quarter: 2019Q2

REPORT INFORMATION
  Report Type: Spontaneous
  Country: US (occurrence: US)
  Receive Date: 20181221
  Receipt Date: 20190628
  Transmission Date: 20190711
  Serious: Yes (Other)
  Sender: FDA-Public Use
  Company Number: US-ASTRAZENECA-2018SF66635

PATIENT
  Age: 66 Year
  Sex: Female
  Weight: 115.7 kg

DRUGS (27)
  1. NEXIUM [Suspect]
     Active Substance: ESOMEPRAZOLE MAGNESIUM
     Indication: GASTROOESOPHAGEAL REFLUX DISEASE
     Dosage: GENERIC 40 MG ONCE DAILY
     Route: 065
     Dates: start: 201508, end: 201604
  2. BENAZEPRIL [Concomitant]
     Active Substance: BENAZEPRIL HYDROCHLORIDE
  3. MELOXICAM. [Concomitant]
     Active Substance: MELOXICAM
  4. COLCHICINE. [Concomitant]
     Active Substance: COLCHICINE
  5. NEXIUM [Suspect]
     Active Substance: ESOMEPRAZOLE MAGNESIUM
     Indication: GASTROOESOPHAGEAL REFLUX DISEASE
     Dosage: 40 MG ONCE DAILY
     Route: 048
     Dates: start: 201406, end: 201507
  6. NEXIUM [Suspect]
     Active Substance: ESOMEPRAZOLE MAGNESIUM
     Indication: GASTROOESOPHAGEAL REFLUX DISEASE
     Dosage: GENERIC 40 MG ONCE DAILY
     Route: 065
     Dates: start: 201704, end: 201705
  7. OMEPRAZOLE. [Suspect]
     Active Substance: OMEPRAZOLE
     Indication: GASTROOESOPHAGEAL REFLUX DISEASE
     Dosage: 40 MG
     Route: 065
     Dates: start: 20140620
  8. OXYBUTYNIN. [Concomitant]
     Active Substance: OXYBUTYNIN CHLORIDE
  9. NEXIUM [Suspect]
     Active Substance: ESOMEPRAZOLE MAGNESIUM
     Indication: GASTROOESOPHAGEAL REFLUX DISEASE
     Route: 048
     Dates: start: 2014, end: 2015
  10. NEXIUM [Suspect]
     Active Substance: ESOMEPRAZOLE MAGNESIUM
     Indication: GASTROOESOPHAGEAL REFLUX DISEASE
     Dosage: 40 MG
     Route: 048
     Dates: start: 20141111
  11. OMEPRAZOLE. [Suspect]
     Active Substance: OMEPRAZOLE
     Indication: GASTROOESOPHAGEAL REFLUX DISEASE
     Dosage: 40 MG ONCE DAILY
     Route: 065
     Dates: start: 201406, end: 201407
  12. ATORVASTATIN [Concomitant]
     Active Substance: ATORVASTATIN
  13. OXYMORPHONE [Concomitant]
     Active Substance: OXYMORPHONE
  14. CLONAZEPAM. [Concomitant]
     Active Substance: CLONAZEPAM
  15. COLCRYS [Concomitant]
     Active Substance: COLCHICINE
  16. ASPIRIN. [Concomitant]
     Active Substance: ASPIRIN
  17. METFORMIN [Concomitant]
     Active Substance: METFORMIN HYDROCHLORIDE
  18. NEXIUM [Suspect]
     Active Substance: ESOMEPRAZOLE MAGNESIUM
     Indication: GASTROOESOPHAGEAL REFLUX DISEASE
     Dosage: GENERIC 40 MG ONCE DAILY
     Route: 065
     Dates: start: 201707
  19. SERTRALINE [Concomitant]
     Active Substance: SERTRALINE HYDROCHLORIDE
  20. MELOXICAM. [Concomitant]
     Active Substance: MELOXICAM
  21. PANTOPRAZOLE [Suspect]
     Active Substance: PANTOPRAZOLE
     Indication: GASTROOESOPHAGEAL REFLUX DISEASE
     Dosage: 40 MG ONCE DAILY
     Route: 065
     Dates: start: 201511, end: 201512
  22. CLONAZEPAM. [Concomitant]
     Active Substance: CLONAZEPAM
  23. OXYCODONE [Concomitant]
     Active Substance: OXYCODONE
  24. MORPHINE [Concomitant]
     Active Substance: MORPHINE
  25. GABAPENTIN. [Concomitant]
     Active Substance: GABAPENTIN
  26. ALLOPURINOL. [Concomitant]
     Active Substance: ALLOPURINOL
  27. ENDOCET [Concomitant]
     Active Substance: ACETAMINOPHEN\OXYCODONE HYDROCHLORIDE

REACTIONS (1)
  - Chronic kidney disease [Not Recovered/Not Resolved]

NARRATIVE: CASE EVENT DATE: 2015
